FAERS Safety Report 21482704 (Version 3)
Quarter: 2022Q4

REPORT INFORMATION
  Report Type: Spontaneous
  Country: None (occurrence: US)
  Receive Date: 20221020
  Receipt Date: 20221116
  Transmission Date: 20230113
  Serious: Yes (Hospitalization)
  Sender: FDA-Public Use
  Company Number: US-Kindeva Drug Delivery L.P.-2133994

PATIENT
  Age: 70 Year
  Sex: Male

DRUGS (1)
  1. PROVENTIL HFA [Suspect]
     Active Substance: ALBUTEROL SULFATE
     Route: 055
     Dates: start: 20210915, end: 20210917

REACTIONS (9)
  - Heart rate increased [Unknown]
  - Loss of consciousness [Unknown]
  - Head injury [Unknown]
  - Joint injury [Unknown]
  - Supraventricular tachycardia [Unknown]
  - Nausea [Unknown]
  - Dizziness [Unknown]
  - Haemorrhage [Unknown]
  - Enzyme level increased [Unknown]
